FAERS Safety Report 15318875 (Version 1)
Quarter: 2018Q3

REPORT INFORMATION
  Report Type: Spontaneous
  Country: US (occurrence: US)
  Receive Date: 20180820
  Receipt Date: 20180820
  Transmission Date: 20181010
  Serious: Yes (Hospitalization, Disabling)
  Sender: FDA-Public Use
  Company Number: None

PATIENT
  Age: 68 Year
  Sex: Male
  Weight: 69.75 kg

DRUGS (1)
  1. VICTOZA [Suspect]
     Active Substance: LIRAGLUTIDE
     Indication: TYPE 2 DIABETES MELLITUS
     Dosage: ?          QUANTITY:1.8 INJECTION(S);?
     Route: 030
     Dates: start: 20170703, end: 20180707

REACTIONS (3)
  - Abdominal pain upper [None]
  - Pancreatitis acute [None]
  - Vomiting [None]

NARRATIVE: CASE EVENT DATE: 20180707
